FAERS Safety Report 8942039 (Version 1)
Quarter: 2012Q4

REPORT INFORMATION
  Report Type: 
  Country: ES (occurrence: ES)
  Receive Date: 20121130
  Receipt Date: 20121130
  Transmission Date: 20130627
  Serious: Yes (Hospitalization)
  Sender: FDA-Public Use
  Company Number: ES-ELI_LILLY_AND_COMPANY-ES201211006606

PATIENT
  Sex: Male
  Weight: 68 kg

DRUGS (7)
  1. FORSTEO [Suspect]
     Indication: OSTEOPOROSIS
     Dosage: 20 ug, qd
     Route: 058
     Dates: start: 20120318, end: 201209
  2. SINTROM [Concomitant]
     Indication: ARRHYTHMIA
     Dosage: UNK
     Route: 048
  3. CARDENE [Concomitant]
     Indication: HYPERTENSION
     Dosage: 20 mg, qd
     Route: 048
  4. ENALAPRIL [Concomitant]
     Indication: HYPERTENSION
     Dosage: 20 mg, qd
  5. SEGURIL [Concomitant]
     Indication: HYPERTENSION
     Dosage: UNK
     Route: 048
  6. OMEPRAZOL [Concomitant]
     Indication: GASTRIC PH INCREASED
     Dosage: UNK, qd
     Route: 048
  7. COLCHIMAX [Concomitant]
     Dosage: UNK
     Route: 048

REACTIONS (1)
  - Device failure [Recovered/Resolved]
